FAERS Safety Report 8156465-5 (Version None)
Quarter: 2012Q1

REPORT INFORMATION
  Report Type: 
  Country: None (occurrence: None)
  Receive Date: 20120222
  Receipt Date: 20120217
  Transmission Date: 20120608
  Serious: Yes (Other)
  Sender: FDA-Public Use
  Company Number: DE-SANOFI-AVENTIS-2011SA082400

PATIENT
  Age: 72 Year
  Sex: Female
  Weight: 51 kg

DRUGS (5)
  1. DIGOXIN [Concomitant]
     Route: 048
  2. BELOC MITE [Concomitant]
     Route: 048
  3. MULTAQ [Suspect]
     Route: 048
     Dates: start: 20110101, end: 20111201
  4. SPIRONOLACTONE [Concomitant]
     Route: 065
  5. MARCUMAR [Concomitant]
     Route: 065

REACTIONS (1)
  - WEIGHT DECREASED [None]
